FAERS Safety Report 21834193 (Version 1)
Quarter: 2023Q1

REPORT INFORMATION
  Report Type: Spontaneous
  Country: US (occurrence: None)
  Receive Date: 20230108
  Receipt Date: 20230108
  Transmission Date: 20230418
  Serious: No
  Sender: FDA-Public Use
  Company Number: US-ROCHE-2962512

PATIENT
  Sex: Male

DRUGS (2)
  1. HEMLIBRA [Suspect]
     Active Substance: EMICIZUMAB-KXWH
     Indication: Factor VIII deficiency
     Dosage: STRENGTH: 105MG/7ML
     Route: 058
     Dates: start: 20210713
  2. CELECOXIB [Concomitant]
     Active Substance: CELECOXIB
     Route: 065

REACTIONS (2)
  - Haemophilic arthropathy [Unknown]
  - Pain [Unknown]
